FAERS Safety Report 16233290 (Version 1)
Quarter: 2019Q2

REPORT INFORMATION
  Report Type: Spontaneous
  Country: US (occurrence: US)
  Receive Date: 20190424
  Receipt Date: 20190424
  Transmission Date: 20190711
  Serious: Yes (Other)
  Sender: FDA-Public Use
  Company Number: PHEH2019US016921

PATIENT

DRUGS (11)
  1. CARBOPLATIN. [Suspect]
     Active Substance: CARBOPLATIN
     Indication: B-CELL LYMPHOMA
     Dosage: UNK
     Route: 065
     Dates: start: 20171015
  2. CYCLOPHOSPHAMIDE. [Suspect]
     Active Substance: CYCLOPHOSPHAMIDE
     Indication: B-CELL LYMPHOMA
     Dosage: UNK
     Route: 065
     Dates: start: 201605
  3. RITUXIMAB. [Suspect]
     Active Substance: RITUXIMAB
     Indication: B-CELL LYMPHOMA
     Dosage: UNK
     Route: 065
     Dates: start: 20171015
  4. RITUXIMAB. [Suspect]
     Active Substance: RITUXIMAB
     Dosage: UNK
     Route: 065
     Dates: start: 201810
  5. VINCRISTINE [Suspect]
     Active Substance: VINCRISTINE
     Indication: B-CELL LYMPHOMA
     Dosage: UNK
     Route: 065
     Dates: start: 201605
  6. IBRUTINIB [Suspect]
     Active Substance: IBRUTINIB
     Indication: B-CELL LYMPHOMA
     Dosage: UNK
     Route: 065
     Dates: start: 201810
  7. ETOPOSIDE. [Suspect]
     Active Substance: ETOPOSIDE
     Indication: B-CELL LYMPHOMA
     Dosage: UNK
     Route: 065
     Dates: start: 20171015
  8. PREDNISONE. [Suspect]
     Active Substance: PREDNISONE
     Indication: B-CELL LYMPHOMA
     Dosage: UNK
     Route: 065
     Dates: start: 201605
  9. DOXORUBICIN [Suspect]
     Active Substance: DOXORUBICIN
     Indication: B-CELL LYMPHOMA
     Dosage: UNK
     Route: 065
     Dates: start: 201605
  10. IFOSFAMIDE. [Suspect]
     Active Substance: IFOSFAMIDE
     Indication: B-CELL LYMPHOMA
     Dosage: UNK
     Route: 065
     Dates: start: 20171015
  11. LENALIDOMIDE [Suspect]
     Active Substance: LENALIDOMIDE
     Indication: B-CELL LYMPHOMA
     Dosage: UNK
     Route: 065
     Dates: start: 201810

REACTIONS (2)
  - B-cell lymphoma [Unknown]
  - Condition aggravated [Unknown]
